FAERS Safety Report 7518575-2 (Version None)
Quarter: 2011Q2

REPORT INFORMATION
  Report Type: 
  Country: None (occurrence: None)
  Receive Date: 20110601
  Receipt Date: 20110601
  Transmission Date: 20111010
  Serious: Yes (Hospitalization, Other)
  Sender: FDA-Public Use
  Company Number: None

PATIENT
  Age: 37 Year
  Sex: Female
  Weight: 58.9676 kg

DRUGS (1)
  1. AVELOX [Suspect]
     Indication: PARONYCHIA
     Dosage: 400MG 1X/DAY PO
     Route: 048
     Dates: start: 20110120, end: 20110126

REACTIONS (14)
  - MUSCULOSKELETAL PAIN [None]
  - TENDONITIS [None]
  - PLANTAR FASCIITIS [None]
  - PARAESTHESIA [None]
  - MUSCULOSKELETAL STIFFNESS [None]
  - MUSCLE TWITCHING [None]
  - ANXIETY [None]
  - INSOMNIA [None]
  - PANIC ATTACK [None]
  - NIGHT SWEATS [None]
  - MYALGIA [None]
  - NEURALGIA [None]
  - ARTHRALGIA [None]
  - NERVE INJURY [None]
